FAERS Safety Report 8154695 (Version 2)
Quarter: 2013Q4

REPORT INFORMATION
  Report Type: Spontaneous
  Country: US (occurrence: US)
  Receive Date: 20110923
  Receipt Date: 20131217
  Transmission Date: 20140711
  Serious: Yes (Hospitalization)
  Sender: FDA-Public Use
  Company Number: US-GLAXOSMITHKLINE-A0945503A

PATIENT
  Sex: Female

DRUGS (1)
  1. ADVAIR [Suspect]
     Indication: DYSPNOEA
     Route: 065
     Dates: start: 20090401

REACTIONS (2)
  - Adverse event [Unknown]
  - Surgery [Unknown]
